FAERS Safety Report 4668274-X (Version None)
Quarter: 2005Q2

REPORT INFORMATION
  Report Type: 
  Country: None (occurrence: None)
  Receive Date: 20050523
  Receipt Date: 20041102
  Transmission Date: 20051028
  Serious: Yes (Other)
  Sender: FDA-Public Use
  Company Number: PHEH2004US11833

PATIENT
  Age: 78 Year
  Sex: Female

DRUGS (9)
  1. ZOMETA [Suspect]
     Indication: BREAST CANCER METASTATIC
  2. NEURONTIN [Concomitant]
  3. TAMOXIFEN [Concomitant]
  4. SYNTHROID [Concomitant]
  5. VITAMIN E [Concomitant]
  6. MULTI-VITAMINS [Concomitant]
  7. CALCIUM CITRATE [Concomitant]
  8. HYDROCHLOROTHIAZIDE [Concomitant]
  9. AREDIA [Suspect]
     Indication: BREAST CANCER METASTATIC
     Dosage: 90MG QMO
     Dates: start: 20011030, end: 20020325

REACTIONS (6)
  - BONE DISORDER [None]
  - INFLAMMATION [None]
  - JAW DISORDER [None]
  - OSTEONECROSIS [None]
  - SEQUESTRECTOMY [None]
  - TOOTH EXTRACTION [None]
